FAERS Safety Report 4561178-2 (Version None)
Quarter: 2005Q1

REPORT INFORMATION
  Report Type: 
  Country: None (occurrence: None)
  Receive Date: 20050126
  Receipt Date: 20050120
  Transmission Date: 20050727
  Serious: Yes (Hospitalization)
  Sender: FDA-Public Use
  Company Number: 200510557GDDC

PATIENT
  Age: 81 Year
  Sex: Female

DRUGS (5)
  1. NATRILIX - SLOW RELEASE [Suspect]
     Indication: DRUG USE FOR UNKNOWN INDICATION
     Route: 048
     Dates: end: 20041209
  2. COVERSYL [Concomitant]
  3. ASPIRIN [Concomitant]
  4. OMEPRAZOLE [Concomitant]
  5. CELECOXIB [Concomitant]

REACTIONS (3)
  - CONVULSION [None]
  - DISEASE RECURRENCE [None]
  - HYPONATRAEMIA [None]
